FAERS Safety Report 13693103 (Version 1)
Quarter: 2017Q2

REPORT INFORMATION
  Report Type: Spontaneous
  Country: US (occurrence: US)
  Receive Date: 20170627
  Receipt Date: 20170627
  Transmission Date: 20170830
  Serious: No
  Sender: FDA-Public Use
  Company Number: US-MYLANLABS-2016M1038042

PATIENT
  Age: 76 Year
  Sex: Male
  Weight: 61.22 kg

DRUGS (7)
  1. PRAZOSIN HYDROCHLORIDE CAPSULES USP [Suspect]
     Active Substance: PRAZOSIN HYDROCHLORIDE
     Indication: NIGHTMARE
  2. ANDROGEL [Concomitant]
     Active Substance: TESTOSTERONE
     Indication: BLOOD TESTOSTERONE DECREASED
     Dosage: UNK
     Dates: start: 20150823, end: 20160823
  3. PRAZOSIN HYDROCHLORIDE CAPSULES USP [Suspect]
     Active Substance: PRAZOSIN HYDROCHLORIDE
     Indication: POST-TRAUMATIC STRESS DISORDER
     Dosage: 1 MG, QHS
     Route: 048
     Dates: start: 20160823
  4. PEPCID COMPLETE                    /00706001/ [Concomitant]
     Dosage: 2 DF, AM
     Dates: start: 201608
  5. PEPCID COMPLETE                    /00706001/ [Concomitant]
     Dosage: 2 DF, HS
     Dates: start: 201608
  6. PRAZOSIN. [Suspect]
     Active Substance: PRAZOSIN
     Indication: POST-TRAUMATIC STRESS DISORDER
     Dosage: 2 MG, QHS
     Route: 048
     Dates: start: 2014
  7. PRAZOSIN. [Suspect]
     Active Substance: PRAZOSIN
     Indication: NIGHTMARE

REACTIONS (2)
  - Nightmare [Not Recovered/Not Resolved]
  - Depression [Not Recovered/Not Resolved]

NARRATIVE: CASE EVENT DATE: 20160824
